FAERS Safety Report 11167893 (Version 3)
Quarter: 2015Q2

REPORT INFORMATION
  Report Type: Report from Study
  Country: CN (occurrence: CN)
  Receive Date: 20150605
  Receipt Date: 20150612
  Transmission Date: 20150821
  Serious: Yes (Other)
  Sender: FDA-Public Use
  Company Number: CN-BIOMARINAP-CN-2015-106514

PATIENT
  Sex: Female

DRUGS (4)
  1. KUVAN [Suspect]
     Active Substance: SAPROPTERIN DIHYDROCHLORIDE
     Dosage: 12.5 MG, QD
     Route: 048
     Dates: start: 20150411
  2. MADOPAR [Concomitant]
     Active Substance: BENSERAZIDE HYDROCHLORIDE\LEVODOPA
     Indication: PRODUCT USED FOR UNKNOWN INDICATION
     Dosage: UNK
  3. KUVAN [Suspect]
     Active Substance: SAPROPTERIN DIHYDROCHLORIDE
     Indication: PHENYLKETONURIA
     Dosage: 10 MG, QD
     Route: 048
     Dates: start: 20140418, end: 20150410
  4. 5-HTP                              /00439301/ [Concomitant]
     Indication: PRODUCT USED FOR UNKNOWN INDICATION
     Dosage: UNK

REACTIONS (4)
  - Tremor [Recovered/Resolved]
  - Liver injury [Unknown]
  - Lipids increased [Recovered/Resolved]
  - Counterfeit drug administered [Unknown]
